FAERS Safety Report 7390334-3 (Version None)
Quarter: 2011Q2

REPORT INFORMATION
  Report Type: 
  Country: None (occurrence: None)
  Receive Date: 20110401
  Receipt Date: 20110321
  Transmission Date: 20111010
  Serious: Yes (Death, Hospitalization, Disabling, Other)
  Sender: FDA-Public Use
  Company Number: GB-GENENTECH-315118

PATIENT
  Sex: Female
  Weight: 50 kg

DRUGS (5)
  1. MORPHINE [Concomitant]
     Dosage: UNK
  2. MIDAZOLAM [Concomitant]
     Dosage: UNK
  3. BENDAMUSTINE [Suspect]
     Indication: B-CELL LYMPHOMA
     Dosage: UNK
     Route: 065
     Dates: start: 20100601, end: 20101201
  4. SILDENAFIL [Suspect]
     Indication: PULMONARY FIBROSIS
     Dosage: 10 MG, TID
     Route: 042
     Dates: start: 20110211, end: 20110214
  5. RITUXIMAB [Suspect]
     Indication: B-CELL LYMPHOMA
     Dosage: UNK
     Route: 065
     Dates: start: 20100601

REACTIONS (2)
  - HYPOTENSION [None]
  - PULMONARY FIBROSIS [None]
